FAERS Safety Report 25068095 (Version 1)
Quarter: 2025Q1

REPORT INFORMATION
  Report Type: Spontaneous
  Country: FR (occurrence: FR)
  Receive Date: 20250312
  Receipt Date: 20250312
  Transmission Date: 20250408
  Serious: Yes (Death, Other)
  Sender: STRIDES
  Company Number: FR-STRIDES ARCOLAB LIMITED-2025SP002982

PATIENT
  Age: 14 Year
  Sex: Male

DRUGS (3)
  1. ETOPOSIDE [Suspect]
     Active Substance: ETOPOSIDE
     Indication: Medulloblastoma
     Route: 048
  2. AXITINIB [Suspect]
     Active Substance: AXITINIB
     Indication: Medulloblastoma
     Route: 048
  3. BEVACIZUMAB [Concomitant]
     Active Substance: BEVACIZUMAB
     Indication: Immunosuppressant drug therapy
     Route: 065

REACTIONS (6)
  - Disease progression [Fatal]
  - Drug ineffective for unapproved indication [Fatal]
  - Thrombocytopenia [Unknown]
  - Proteinuria [Unknown]
  - Hypertension [Unknown]
  - Diarrhoea [Unknown]
